FAERS Safety Report 6938447-1 (Version None)
Quarter: 2010Q3

REPORT INFORMATION
  Report Type: 
  Country: None (occurrence: None)
  Receive Date: 20100824
  Receipt Date: 20100816
  Transmission Date: 20110219
  Serious: Yes (Hospitalization)
  Sender: FDA-Public Use
  Company Number: BR-ELI_LILLY_AND_COMPANY-BR201008004752

PATIENT
  Sex: Female
  Weight: 48 kg

DRUGS (7)
  1. FORTEO [Suspect]
     Indication: OSTEOPOROSIS
     Dosage: UNK, DAILY (1/D)
     Route: 058
  2. DIAZEPAM [Concomitant]
     Indication: DEPRESSION
     Dosage: 10 MG, DAILY (1/D)
     Route: 048
     Dates: start: 20050101
  3. CAPTOPRIL [Concomitant]
     Indication: HYPERTENSION
     Dosage: 10 UNK, 2/D
     Route: 048
     Dates: start: 20070101
  4. CAPTOPRIL [Concomitant]
     Dosage: 20 MG, 3/D
     Route: 048
     Dates: start: 20100601
  5. ASMAVEN [Concomitant]
     Indication: BRONCHITIS
     Dosage: UNK, 3/D
     Route: 048
     Dates: start: 20060101
  6. DORFLEX [Concomitant]
     Indication: PAIN
     Dosage: UNK, AS NEEDED
     Route: 048
  7. PARACETAMOL [Concomitant]
     Indication: PAIN
     Dosage: UNK, AS NEEDED
     Route: 048

REACTIONS (1)
  - CEREBROVASCULAR ACCIDENT [None]
